FAERS Safety Report 15314822 (Version 1)
Quarter: 2018Q3

REPORT INFORMATION
  Report Type: Spontaneous
  Country: ES (occurrence: ES)
  Receive Date: 20180824
  Receipt Date: 20180824
  Transmission Date: 20181010
  Serious: Yes (Other)
  Sender: FDA-Public Use
  Company Number: ES-AUROBINDO-AUR-APL-2018-042948

PATIENT
  Age: 44 Year
  Sex: Female

DRUGS (3)
  1. METAMIZOLE [Suspect]
     Active Substance: METAMIZOLE
     Indication: PAIN
     Dosage: 1G CADA 6?8 HORAS EN 4 OCASIONES (30/04/2017?02/05/2017, 19/05/2017?23/05/2017, 01/06/2017?19/06/...
     Route: 042
     Dates: start: 20170430, end: 20170712
  2. ENALAPRIL [Concomitant]
     Active Substance: ENALAPRIL
     Indication: HYPERTENSION
     Dosage: 10MG CADA 12H
     Route: 048
     Dates: start: 20170514
  3. MEROPENEM. [Suspect]
     Active Substance: MEROPENEM
     Indication: SEPSIS
     Dosage: 1G CADA 8 HORAS EN 3 OCASIONES (26/05/2017?31/05/2017, 09/06/2017?14/06/2017, 20/06/2017?22/06/20...
     Route: 042
     Dates: start: 20170526, end: 20170706

REACTIONS (1)
  - Cyclic neutropenia [Recovered/Resolved]

NARRATIVE: CASE EVENT DATE: 20170526
